FAERS Safety Report 23853046 (Version 1)
Quarter: 2024Q2

REPORT INFORMATION
  Report Type: Spontaneous
  Country: DE (occurrence: DE)
  Receive Date: 20240514
  Receipt Date: 20240514
  Transmission Date: 20240715
  Serious: Yes (Other)
  Sender: FDA-Public Use
  Company Number: DE-Santen Oy-2024-DEU-003907

PATIENT

DRUGS (1)
  1. LATANOPROST\NETARSUDIL MESYLATE [Suspect]
     Active Substance: LATANOPROST\NETARSUDIL MESYLATE
     Indication: Open angle glaucoma
     Dosage: 1 X 1 DROP DAILY
     Route: 047
     Dates: start: 202402, end: 20240508

REACTIONS (2)
  - Visual impairment [Unknown]
  - Cornea verticillata [Unknown]

NARRATIVE: CASE EVENT DATE: 20240101
